FAERS Safety Report 8993547 (Version 5)
Quarter: 2013Q3

REPORT INFORMATION
  Report Type: Spontaneous
  Country: US (occurrence: US)
  Receive Date: 20130102
  Receipt Date: 20130906
  Transmission Date: 20140515
  Serious: Yes (Hospitalization, Disabling, Other)
  Sender: FDA-Public Use
  Company Number: US-009507513-1203USA01347

PATIENT
  Sex: Male
  Weight: 60.77 kg

DRUGS (8)
  1. FOSAMAX [Suspect]
     Indication: OSTEOPOROSIS
     Dosage: 10 MG, UNK
     Route: 048
     Dates: start: 20000515
  2. FOSAMAX [Suspect]
     Dosage: 70 MG, QW
     Route: 048
     Dates: start: 2000
  3. PRILOSEC [Concomitant]
     Indication: GASTROOESOPHAGEAL REFLUX DISEASE
     Dosage: UNK
     Route: 048
     Dates: start: 1994
  4. TYLENOL [Concomitant]
     Indication: BACK PAIN
     Dosage: UNK
     Dates: start: 200004
  5. ADVIL [Concomitant]
     Indication: BACK PAIN
     Dosage: UNK
     Dates: start: 200004
  6. ADVIL [Concomitant]
     Indication: INFLAMMATION
  7. CALCIUM (UNSPECIFIED) [Concomitant]
     Indication: OSTEOPOROSIS
     Dosage: UNK
     Dates: start: 199912
  8. PERCOCET [Concomitant]
     Indication: BACK PAIN
     Dosage: UNK
     Dates: start: 20000520

REACTIONS (26)
  - Femur fracture [Unknown]
  - Intramedullary rod insertion [Unknown]
  - Open reduction of fracture [Unknown]
  - Dysuria [Unknown]
  - Fall [Unknown]
  - Back pain [Not Recovered/Not Resolved]
  - Low turnover osteopathy [Unknown]
  - Hiatus hernia [Unknown]
  - Spinal compression fracture [Unknown]
  - Osteopenia [Unknown]
  - Osteoarthritis [Unknown]
  - Exostosis [Unknown]
  - Back injury [Unknown]
  - Scoliosis [Unknown]
  - Intervertebral disc degeneration [Unknown]
  - Sciatica [Unknown]
  - Lipoma [Unknown]
  - Hypertension [Unknown]
  - Benign prostatic hyperplasia [Unknown]
  - Lumbar spine flattening [Unknown]
  - Lumbar spinal stenosis [Unknown]
  - Adverse drug reaction [Unknown]
  - Joint swelling [Unknown]
  - Malaise [Not Recovered/Not Resolved]
  - Musculoskeletal chest pain [Unknown]
  - Muscle spasms [Unknown]
